FAERS Safety Report 15782751 (Version 1)
Quarter: 2019Q1

REPORT INFORMATION
  Report Type: Spontaneous
  Country: US (occurrence: US)
  Receive Date: 20190102
  Receipt Date: 20190102
  Transmission Date: 20190417
  Serious: Yes (Hospitalization)
  Sender: FDA-Public Use
  Company Number: US-MYLANLABS-2018M1096711

PATIENT
  Age: 57 Year
  Sex: Female

DRUGS (3)
  1. LEVOFLOXACIN. [Suspect]
     Active Substance: LEVOFLOXACIN
     Indication: PROPHYLAXIS
     Route: 065
  2. NIVOLUMAB [Suspect]
     Active Substance: NIVOLUMAB
     Indication: GLIOBLASTOMA MULTIFORME
     Dosage: ON DAY 1 EVERY 14 DAYS
     Route: 042
  3. LOMUSTINE. [Suspect]
     Active Substance: LOMUSTINE
     Indication: GLIOBLASTOMA MULTIFORME
     Dosage: AT BEDTIME ONCE EVERY SIX WEEKS
     Route: 048

REACTIONS (2)
  - Rash morbilliform [Unknown]
  - Aplastic anaemia [Unknown]
